FAERS Safety Report 18967700 (Version 1)
Quarter: 2021Q1

REPORT INFORMATION
  Report Type: Report from Study
  Country: US (occurrence: US)
  Receive Date: 20210304
  Receipt Date: 20210304
  Transmission Date: 20210420
  Serious: Yes (Death)
  Sender: FDA-Public Use
  Company Number: US-TAIHO ONCOLOGY  INC-EU-2021-00620

PATIENT
  Sex: Male

DRUGS (1)
  1. LONSURF [Suspect]
     Active Substance: TIPIRACIL HYDROCHLORIDE\TRIFLURIDINE
     Indication: MALIGNANT ANORECTAL NEOPLASM
     Dosage: 3 TABLETS BY MOUTH TWICE DAILY ON DAYS 1?5 AND DAYS 8?12 OF EACH 28 DAY CYCLE
     Route: 048
     Dates: start: 20210121

REACTIONS (1)
  - Death [Fatal]
